FAERS Safety Report 9109250 (Version 3)
Quarter: 2014Q1

REPORT INFORMATION
  Report Type: Spontaneous
  Country: BR (occurrence: BR)
  Receive Date: 20130222
  Receipt Date: 20140310
  Transmission Date: 20141002
  Serious: Yes (Hospitalization)
  Sender: FDA-Public Use
  Company Number: BR-SANOFI-AVENTIS-2013SA016517

PATIENT
  Sex: Female

DRUGS (1)
  1. DOLANTINA [Suspect]
     Indication: MATERNAL EXPOSURE TIMING UNSPECIFIED
     Route: 064
     Dates: start: 20001222, end: 20001222

REACTIONS (5)
  - Neonatal disorder [Recovered/Resolved with Sequelae]
  - Foetal exposure during pregnancy [Unknown]
  - Depression [Recovered/Resolved with Sequelae]
  - Anoxia [Recovered/Resolved with Sequelae]
  - Cerebral palsy [Recovered/Resolved with Sequelae]
